FAERS Safety Report 15373851 (Version 4)
Quarter: 2020Q3

REPORT INFORMATION
  Report Type: Spontaneous
  Country: US (occurrence: US)
  Receive Date: 20180912
  Receipt Date: 20200728
  Transmission Date: 20201102
  Serious: No
  Sender: FDA-Public Use
  Company Number: US-PFIZER INC-2018366091

PATIENT
  Age: 68 Year
  Sex: Male
  Weight: 53.98 kg

DRUGS (3)
  1. VFEND [Suspect]
     Active Substance: VORICONAZOLE
     Indication: INFECTIOUS PLEURAL EFFUSION
     Dosage: 200 MG, DAILY
     Route: 048
  2. VFEND [Suspect]
     Active Substance: VORICONAZOLE
     Indication: FUNGAL INFECTION
     Dosage: 2 DF, DAILY
     Route: 048
     Dates: start: 20151022
  3. VFEND [Suspect]
     Active Substance: VORICONAZOLE
     Indication: LUNG ABSCESS
     Dosage: 1 DF, DAILY
     Route: 048
     Dates: end: 20180806

REACTIONS (3)
  - Drug ineffective [Unknown]
  - Blood alkaline phosphatase increased [Unknown]
  - Hepatic enzyme abnormal [Unknown]

NARRATIVE: CASE EVENT DATE: 20151103
